FAERS Safety Report 9188466 (Version 1)
Quarter: 2013Q1

REPORT INFORMATION
  Report Type: Spontaneous
  Country: US (occurrence: US)
  Receive Date: 20130325
  Receipt Date: 20130325
  Transmission Date: 20140127
  Serious: No
  Sender: FDA-Public Use
  Company Number: US-BAUSCH-BL-2013-000245

PATIENT
  Age: 51 Year
  Sex: Female

DRUGS (1)
  1. POLYMYXIN B SULFATE AND TRIMETHOPRIM OPHTHALMIC SOLUTION USP [Suspect]
     Indication: CONJUNCTIVITIS
     Dosage: 2 DROPS IN EACH EYE, THREE TIMES PER DAY
     Route: 047
     Dates: start: 20130109, end: 20130111

REACTIONS (6)
  - Eyelid oedema [Recovered/Resolved]
  - Ocular hyperaemia [Recovered/Resolved]
  - Scleral discolouration [Recovered/Resolved]
  - Lacrimation increased [Recovered/Resolved]
  - Vision blurred [Recovered/Resolved]
  - Eye pain [Recovered/Resolved]
